FAERS Safety Report 20108514 (Version 21)
Quarter: 2023Q4

REPORT INFORMATION
  Report Type: Report from Study
  Country: CN (occurrence: None)
  Receive Date: 20211124
  Receipt Date: 20231128
  Transmission Date: 20240109
  Serious: Yes (Hospitalization)
  Sender: FDA-Public Use
  Company Number: CN-ROCHE-2958609

PATIENT
  Age: 61 Year
  Sex: Male
  Weight: 61 kg

DRUGS (80)
  1. ATEZOLIZUMAB [Suspect]
     Active Substance: ATEZOLIZUMAB
     Indication: Small cell lung cancer extensive stage
     Dosage: 11/SEP/2021:MOST RECENT DOSE OF ATEZOLIZUMAB PRIOR TO SAE ONSET 1200 MG
     Route: 041
     Dates: start: 20210619
  2. BEVACIZUMAB [Suspect]
     Active Substance: BEVACIZUMAB
     Indication: Small cell lung cancer extensive stage
     Dosage: 23/OCT/2021, 11/SEP/2021 MOST RECENT DOSE OF BEVACIZUMAB/PLACEBO PRIOR TO SAE ONSET
     Route: 042
     Dates: start: 20210619
  3. CARBOPLATIN [Suspect]
     Active Substance: CARBOPLATIN
     Indication: Small cell lung cancer extensive stage
     Dosage: 22/AUG/2021:MOST RECENT DOSE OF CARBOPLATIN PRIOR TO AE ONSET?LAST DOSE OF CARBOPLATIN ADMINISTERED
     Route: 042
     Dates: start: 20210619
  4. ETOPOSIDE [Suspect]
     Active Substance: ETOPOSIDE
     Indication: Small cell lung cancer extensive stage
     Dosage: 24/AUG/2021:MOST RECENT DOSE OF ETOPOSIDE PRIOR TO AE ONSET
     Route: 042
     Dates: start: 20210619
  5. GLIMEPIRIDE [Concomitant]
     Active Substance: GLIMEPIRIDE
     Indication: Type 2 diabetes mellitus
     Route: 048
     Dates: start: 2017, end: 20210616
  6. ACARBOSE [Concomitant]
     Active Substance: ACARBOSE
     Indication: Type 2 diabetes mellitus
     Route: 048
     Dates: start: 20210616, end: 20210617
  7. ACARBOSE [Concomitant]
     Active Substance: ACARBOSE
     Dates: end: 20210621
  8. INSULIN ASPART [Concomitant]
     Active Substance: INSULIN ASPART
     Indication: Type 2 diabetes mellitus
     Route: 042
     Dates: start: 20210616, end: 20210621
  9. LACTULOSE [Concomitant]
     Active Substance: LACTULOSE
     Indication: Constipation
     Route: 048
     Dates: start: 20210616, end: 20210621
  10. FOLIC ACID [Concomitant]
     Active Substance: FOLIC ACID
     Indication: Anaemia
     Route: 048
     Dates: start: 20210617, end: 20210621
  11. ONDANSETRON HYDROCHLORIDE [Concomitant]
     Active Substance: ONDANSETRON HYDROCHLORIDE
     Indication: Prophylaxis
     Route: 042
     Dates: start: 20210619, end: 20210621
  12. ONDANSETRON HYDROCHLORIDE [Concomitant]
     Active Substance: ONDANSETRON HYDROCHLORIDE
     Route: 042
     Dates: start: 20210710, end: 20210712
  13. ONDANSETRON HYDROCHLORIDE [Concomitant]
     Active Substance: ONDANSETRON HYDROCHLORIDE
     Route: 048
     Dates: start: 20210725
  14. ONDANSETRON HYDROCHLORIDE [Concomitant]
     Active Substance: ONDANSETRON HYDROCHLORIDE
     Route: 048
     Dates: start: 20210713, end: 20210714
  15. ONDANSETRON HYDROCHLORIDE [Concomitant]
     Active Substance: ONDANSETRON HYDROCHLORIDE
     Route: 042
     Dates: start: 20210801, end: 20210803
  16. ONDANSETRON HYDROCHLORIDE [Concomitant]
     Active Substance: ONDANSETRON HYDROCHLORIDE
     Route: 042
     Dates: start: 20210822, end: 20210824
  17. ONDANSETRON HYDROCHLORIDE [Concomitant]
     Active Substance: ONDANSETRON HYDROCHLORIDE
     Route: 042
     Dates: start: 20210620
  18. INSULIN NOS [Concomitant]
     Active Substance: INSULIN NOS
     Indication: Type 2 diabetes mellitus
     Route: 042
     Dates: start: 20210619, end: 20210621
  19. INSULIN NOS [Concomitant]
     Active Substance: INSULIN NOS
     Route: 042
     Dates: start: 20210710, end: 20210712
  20. INSULIN NOS [Concomitant]
     Active Substance: INSULIN NOS
     Route: 042
     Dates: start: 20210801, end: 20210803
  21. VITAMIN B6 [Concomitant]
     Active Substance: PYRIDOXINE HYDROCHLORIDE
     Indication: Prophylaxis
     Route: 042
     Dates: start: 20210619, end: 20210621
  22. VITAMIN B6 [Concomitant]
     Active Substance: PYRIDOXINE HYDROCHLORIDE
     Route: 042
     Dates: start: 20210710, end: 20210712
  23. VITAMIN B6 [Concomitant]
     Active Substance: PYRIDOXINE HYDROCHLORIDE
     Route: 042
     Dates: start: 20210801, end: 20210803
  24. VITAMIN B6 [Concomitant]
     Active Substance: PYRIDOXINE HYDROCHLORIDE
     Route: 042
     Dates: start: 20210822, end: 20210824
  25. GLIMEPIRIDE [Concomitant]
     Active Substance: GLIMEPIRIDE
     Indication: Type 2 diabetes mellitus
     Route: 048
     Dates: start: 20210621
  26. METFORMIN HYDROCHLORIDE [Concomitant]
     Active Substance: METFORMIN HYDROCHLORIDE
     Indication: Type 2 diabetes mellitus
     Route: 048
     Dates: start: 20210621, end: 20210728
  27. METFORMIN HYDROCHLORIDE [Concomitant]
     Active Substance: METFORMIN HYDROCHLORIDE
     Route: 048
     Dates: start: 20210801, end: 20210908
  28. METFORMIN HYDROCHLORIDE [Concomitant]
     Active Substance: METFORMIN HYDROCHLORIDE
     Route: 048
     Dates: start: 20210911
  29. METFORMIN HYDROCHLORIDE [Concomitant]
     Active Substance: METFORMIN HYDROCHLORIDE
     Dates: end: 20211019
  30. METFORMIN HYDROCHLORIDE [Concomitant]
     Active Substance: METFORMIN HYDROCHLORIDE
     Route: 048
     Dates: start: 20211023, end: 20211130
  31. METFORMIN HYDROCHLORIDE [Concomitant]
     Active Substance: METFORMIN HYDROCHLORIDE
     Route: 048
     Dates: start: 20211204, end: 20220118
  32. METFORMIN HYDROCHLORIDE [Concomitant]
     Active Substance: METFORMIN HYDROCHLORIDE
     Route: 048
     Dates: start: 20220122, end: 20220228
  33. METFORMIN HYDROCHLORIDE [Concomitant]
     Active Substance: METFORMIN HYDROCHLORIDE
     Route: 048
     Dates: start: 20230401, end: 20230530
  34. METFORMIN HYDROCHLORIDE [Concomitant]
     Active Substance: METFORMIN HYDROCHLORIDE
     Route: 048
     Dates: start: 20221126, end: 20230128
  35. METFORMIN HYDROCHLORIDE [Concomitant]
     Active Substance: METFORMIN HYDROCHLORIDE
     Route: 048
     Dates: start: 20220924, end: 20221122
  36. METFORMIN HYDROCHLORIDE [Concomitant]
     Active Substance: METFORMIN HYDROCHLORIDE
     Dates: end: 20220523
  37. METFORMIN HYDROCHLORIDE [Concomitant]
     Active Substance: METFORMIN HYDROCHLORIDE
     Route: 048
     Dates: start: 20220720, end: 20220920
  38. METFORMIN HYDROCHLORIDE [Concomitant]
     Active Substance: METFORMIN HYDROCHLORIDE
     Route: 048
     Dates: start: 20220527, end: 20220716
  39. METFORMIN HYDROCHLORIDE [Concomitant]
     Active Substance: METFORMIN HYDROCHLORIDE
     Route: 048
     Dates: start: 20220415, end: 20220513
  40. METFORMIN HYDROCHLORIDE [Concomitant]
     Active Substance: METFORMIN HYDROCHLORIDE
     Route: 048
     Dates: start: 20220304, end: 20220411
  41. METFORMIN HYDROCHLORIDE [Concomitant]
     Active Substance: METFORMIN HYDROCHLORIDE
     Route: 048
     Dates: start: 20230126
  42. METFORMIN HYDROCHLORIDE [Concomitant]
     Active Substance: METFORMIN HYDROCHLORIDE
     Route: 048
     Dates: start: 20211117, end: 20211130
  43. METFORMIN HYDROCHLORIDE [Concomitant]
     Active Substance: METFORMIN HYDROCHLORIDE
     Route: 048
     Dates: start: 20230130, end: 20230328
  44. METFORMIN HYDROCHLORIDE [Concomitant]
     Active Substance: METFORMIN HYDROCHLORIDE
     Dates: start: 20211113, end: 20211113
  45. LORATADINE [Concomitant]
     Active Substance: LORATADINE
     Indication: Erythema
     Route: 048
     Dates: start: 20210625, end: 20210630
  46. LORATADINE [Concomitant]
     Active Substance: LORATADINE
     Indication: Rash
     Route: 048
     Dates: start: 20210709, end: 20210710
  47. LORATADINE [Concomitant]
     Active Substance: LORATADINE
     Route: 048
     Dates: start: 20210511, end: 20211112
  48. LORATADINE [Concomitant]
     Active Substance: LORATADINE
     Route: 048
     Dates: start: 20220312, end: 20220606
  49. LORATADINE [Concomitant]
     Active Substance: LORATADINE
     Route: 048
     Dates: start: 20221216
  50. DESONIDE [Concomitant]
     Active Substance: DESONIDE
     Indication: Erythema
     Dates: start: 20210625
  51. DESONIDE [Concomitant]
     Active Substance: DESONIDE
     Indication: Rash
  52. ESOMEPRAZOLE MAGNESIUM [Concomitant]
     Active Substance: ESOMEPRAZOLE\ESOMEPRAZOLE MAGNESIUM\ESOMEPRAZOLE MAGNESIUM DIHYDRATE
     Indication: Prophylaxis
     Route: 048
     Dates: start: 20210625, end: 20210712
  53. ESOMEPRAZOLE MAGNESIUM [Concomitant]
     Active Substance: ESOMEPRAZOLE\ESOMEPRAZOLE MAGNESIUM\ESOMEPRAZOLE MAGNESIUM DIHYDRATE
     Dates: start: 20210621
  54. OMEPRAZOLE [Concomitant]
     Active Substance: OMEPRAZOLE
     Indication: Prophylaxis
     Route: 048
     Dates: start: 20210725, end: 20211119
  55. MUCOPOLYSACCHARIDE POLYSULFATE [Concomitant]
     Indication: Erythema
     Dates: start: 20210711, end: 20210711
  56. MUCOPOLYSACCHARIDE POLYSULFATE [Concomitant]
     Indication: Rash
  57. LEUCOGEN [Concomitant]
     Active Substance: LEUCOGEN
     Indication: Prophylaxis
     Route: 048
     Dates: start: 20210824, end: 20210909
  58. BATILOL [Concomitant]
     Active Substance: BATILOL
     Indication: Prophylaxis
     Route: 048
     Dates: start: 20210824, end: 20210909
  59. DEXAMETHASONE SODIUM PHOSPHATE [Concomitant]
     Active Substance: DEXAMETHASONE PHOSPHATE\DEXAMETHASONE SODIUM PHOSPHATE
     Indication: Prophylaxis
     Route: 042
     Dates: start: 20210619, end: 20210619
  60. HALOMETASONE [Concomitant]
     Active Substance: HALOMETASONE
     Indication: Erythema
     Dosage: DOSE UNIT: G (GRAM)
     Route: 048
     Dates: start: 20211105, end: 20211112
  61. HALOMETASONE [Concomitant]
     Active Substance: HALOMETASONE
     Indication: Rash
     Dates: start: 20220813, end: 20220813
  62. EBASTINE [Concomitant]
     Active Substance: EBASTINE
     Indication: Erythema
     Route: 048
     Dates: start: 20211105, end: 20211129
  63. EBASTINE [Concomitant]
     Active Substance: EBASTINE
     Indication: Rash
     Route: 048
     Dates: start: 20230107
  64. LEVOTHYROXINE SODIUM [Concomitant]
     Active Substance: LEVOTHYROXINE SODIUM
     Indication: Hypothyroidism
     Route: 048
     Dates: start: 20211114
  65. LEVOTHYROXINE SODIUM [Concomitant]
     Active Substance: LEVOTHYROXINE SODIUM
     Dates: start: 20210114
  66. GLYCYRRHIZIN [Concomitant]
     Active Substance: GLYCYRRHIZIN
     Indication: Rash
     Route: 048
     Dates: start: 20220312, end: 20220606
  67. GLYCYRRHIZIN [Concomitant]
     Active Substance: GLYCYRRHIZIN
     Indication: Hepatic steatosis
     Route: 048
     Dates: start: 20231021
  68. EMEDASTINE DIFUMARATE [Concomitant]
     Active Substance: EMEDASTINE DIFUMARATE
     Indication: Rash
     Route: 048
     Dates: start: 20220312, end: 20220606
  69. METHYLSALICYLATE [Concomitant]
     Indication: Rash
     Dates: start: 20220312, end: 20220606
  70. METHYLSALICYLATE [Concomitant]
     Dates: start: 20221216
  71. MENTHOL [Concomitant]
     Active Substance: MENTHOL
     Indication: Rash
     Dates: start: 20220312, end: 20220606
  72. MENTHOL [Concomitant]
     Active Substance: MENTHOL
     Dates: start: 20221216
  73. TRAMADOL HYDROCHLORIDE [Concomitant]
     Active Substance: TRAMADOL HYDROCHLORIDE
     Indication: Pain in extremity
     Route: 048
     Dates: start: 20210616, end: 20210621
  74. GENTAMICIN SULFATE [Concomitant]
     Active Substance: GENTAMICIN SULFATE
     Dates: start: 20210615, end: 20210617
  75. CLOTRIMAZOLE [Concomitant]
     Active Substance: CLOTRIMAZOLE
     Indication: Rash
     Dates: start: 20220712
  76. PROPRANOLOL [Concomitant]
     Active Substance: PROPRANOLOL HYDROCHLORIDE
     Indication: Thyroiditis
     Route: 048
     Dates: start: 20220813, end: 20220814
  77. CODEINE PHOSPHATE;IBUPROFEN [Concomitant]
     Indication: Muscle strain
     Route: 048
     Dates: start: 20220712, end: 202207
  78. KETOTIFEN [Concomitant]
     Active Substance: KETOTIFEN
  79. CETYLPYRIDINIUM CHLORIDE [Concomitant]
     Active Substance: CETYLPYRIDINIUM CHLORIDE
  80. COMPOUND CODEINE PHOSPHATE AND IBUPROFEN [Concomitant]
     Route: 048
     Dates: start: 20220712, end: 202207

REACTIONS (2)
  - Wound infection [Recovered/Resolved]
  - Thyroiditis [Recovered/Resolved]

NARRATIVE: CASE EVENT DATE: 20210930
